FAERS Safety Report 15589545 (Version 1)
Quarter: 2018Q4

REPORT INFORMATION
  Report Type: Spontaneous
  Country: FR (occurrence: FR)
  Receive Date: 20181106
  Receipt Date: 20181106
  Transmission Date: 20190205
  Serious: Yes (Hospitalization)
  Sender: FDA-Public Use
  Company Number: FR-ACCORD-091144

PATIENT
  Age: 76 Year
  Sex: Female
  Weight: 53.6 kg

DRUGS (9)
  1. CEFTRIAXONE. [Suspect]
     Active Substance: CEFTRIAXONE
     Indication: PULMONARY SEPSIS
     Route: 042
     Dates: start: 20180103, end: 20180105
  2. METHOTREXATE. [Suspect]
     Active Substance: METHOTREXATE
     Indication: RHEUMATOID ARTHRITIS
     Route: 048
     Dates: end: 20180101
  3. CIPROFLOXACINE KABI [Suspect]
     Active Substance: CIPROFLOXACIN
     Indication: PULMONARY SEPSIS
     Route: 042
     Dates: start: 20180105, end: 20180107
  4. ROVAMYCINE [Suspect]
     Active Substance: SPIRAMYCIN
     Indication: PULMONARY SEPSIS
     Route: 042
     Dates: start: 20180104, end: 20180105
  5. PRIMPERAN [Suspect]
     Active Substance: METOCLOPRAMIDE HYDROCHLORIDE
     Indication: NAUSEA
     Route: 048
     Dates: start: 20180105, end: 20180106
  6. CORTANCYL [Concomitant]
     Active Substance: PREDNISONE
     Indication: INFECTION
     Route: 048
     Dates: start: 20180103
  7. PIPERACILLINE TAZOBACTAM MYLAN [Concomitant]
     Active Substance: PIPERACILLIN SODIUM\TAZOBACTAM SODIUM
     Indication: PULMONARY SEPSIS
     Route: 042
     Dates: start: 20180105
  8. OROZAMUDOL [Suspect]
     Active Substance: TRAMADOL
     Indication: PAIN
     Route: 048
     Dates: start: 20180104, end: 20180107
  9. HEPARIN [Concomitant]
     Active Substance: HEPARIN SODIUM
     Indication: PRODUCT USED FOR UNKNOWN INDICATION
     Route: 058
     Dates: start: 20180105

REACTIONS (1)
  - Posterior reversible encephalopathy syndrome [Recovering/Resolving]

NARRATIVE: CASE EVENT DATE: 20180107
